FAERS Safety Report 12763888 (Version 1)
Quarter: 2016Q3

REPORT INFORMATION
  Report Type: Spontaneous
  Country: JP (occurrence: JP)
  Receive Date: 20160920
  Receipt Date: 20160920
  Transmission Date: 20161109
  Serious: Yes (Other)
  Sender: FDA-Public Use
  Company Number: JP-OTSUKA-02100-JPN-01-0034

PATIENT
  Age: 85 Year
  Sex: Male
  Weight: 42 kg

DRUGS (7)
  1. CYLOCK (CIMETIDINE) [Suspect]
     Active Substance: CIMETIDINE
     Indication: PRODUCT USED FOR UNKNOWN INDICATION
     Dosage: 200 MG, QD
     Route: 048
     Dates: start: 19990819, end: 20010302
  2. LASIX [Suspect]
     Active Substance: FUROSEMIDE
     Indication: PRODUCT USED FOR UNKNOWN INDICATION
     Dosage: 20 MG, QD
     Route: 048
     Dates: start: 20010105, end: 20010302
  3. ASPARA-CA [Concomitant]
     Active Substance: CALCIUM ASPARTATE
     Indication: PRODUCT USED FOR UNKNOWN INDICATION
     Dosage: 200 MG, QD
     Route: 048
     Dates: start: 19970408, end: 20010302
  4. D ALFA [Concomitant]
     Active Substance: ALFACALCIDOL
     Indication: PRODUCT USED FOR UNKNOWN INDICATION
     Dosage: 0.5 ?G, QD
     Route: 048
     Dates: start: 19970408, end: 20010302
  5. PLETAAL TABLETS 50MG [Suspect]
     Active Substance: CILOSTAZOL
     Indication: PERIPHERAL ARTERIAL OCCLUSIVE DISEASE
     Dosage: 50 MG, BID
     Route: 048
     Dates: start: 19990701, end: 19990804
  6. PLETAAL TABLETS 50MG [Suspect]
     Active Substance: CILOSTAZOL
     Dosage: 50 MG, TID
     Route: 048
     Dates: start: 19990805, end: 20010302
  7. PONSTEL [Suspect]
     Active Substance: MEFENAMIC ACID
     Indication: PRODUCT USED FOR UNKNOWN INDICATION
     Dosage: 250 MG, TID
     Route: 048
     Dates: start: 19970408, end: 20010302

REACTIONS (6)
  - Oedema [Recovering/Resolving]
  - Conjunctival erosion [Recovering/Resolving]
  - Penile blister [None]
  - Oedema peripheral [None]
  - Erythema multiforme [Not Recovered/Not Resolved]
  - Stomatitis [Recovering/Resolving]

NARRATIVE: CASE EVENT DATE: 19990805
